FAERS Safety Report 7371303-6 (Version None)
Quarter: 2011Q1

REPORT INFORMATION
  Report Type: 
  Country: None (occurrence: None)
  Receive Date: 20110324
  Receipt Date: 20110314
  Transmission Date: 20110831
  Serious: Yes (Hospitalization)
  Sender: FDA-Public Use
  Company Number: US-JNJFOC-20110307132

PATIENT
  Sex: Female
  Weight: 89.81 kg

DRUGS (18)
  1. DURAGESIC-50 [Suspect]
     Indication: UPPER LIMB FRACTURE
     Route: 062
  2. TOPROL-XL [Concomitant]
     Indication: HYPERTENSION
     Route: 048
  3. SEROQUEL [Concomitant]
     Indication: NERVOUSNESS
     Route: 048
  4. FLUOXETINE [Concomitant]
     Indication: DEPRESSION
     Route: 048
  5. FENTANYL-100 [Suspect]
     Indication: UPPER LIMB FRACTURE
     Route: 062
  6. LASIX [Concomitant]
     Indication: FLUID RETENTION
     Route: 048
  7. RANITIDINE [Concomitant]
     Indication: GASTRIC DISORDER
     Route: 048
  8. ROBAXIN [Concomitant]
     Route: 048
  9. RESTORIL [Concomitant]
     Indication: SLEEP DISORDER
     Dosage: AS NEEDED
  10. FENTANYL-100 [Suspect]
     Indication: FIBROMYALGIA
     Route: 062
  11. ROBAXIN [Concomitant]
     Indication: MUSCLE RELAXANT THERAPY
     Route: 048
  12. XANAX [Concomitant]
     Indication: NERVOUSNESS
     Route: 048
  13. DURAGESIC-50 [Suspect]
     Indication: FIBROMYALGIA
     Route: 062
  14. SYNTHROID [Concomitant]
     Indication: SUPPLEMENTATION THERAPY
     Route: 048
  15. FENTANYL-100 [Suspect]
     Route: 062
  16. AMBIEN [Concomitant]
     Indication: SLEEP DISORDER
     Route: 048
  17. THEO-DUR [Concomitant]
     Indication: RESPIRATORY DISORDER
     Route: 065
  18. FENTANYL-100 [Suspect]
     Route: 062

REACTIONS (9)
  - DRUG INEFFECTIVE [None]
  - OESOPHAGEAL HAEMORRHAGE [None]
  - VOMITING [None]
  - CRYING [None]
  - GAIT DISTURBANCE [None]
  - PAIN [None]
  - WITHDRAWAL SYNDROME [None]
  - SCREAMING [None]
  - PRODUCT PACKAGING QUANTITY ISSUE [None]
